FAERS Safety Report 11254629 (Version 3)
Quarter: 2015Q3

REPORT INFORMATION
  Report Type: Spontaneous
  Country: US (occurrence: US)
  Receive Date: 20150709
  Receipt Date: 20150818
  Transmission Date: 20151125
  Serious: Yes (Life-Threatening, Hospitalization, Other)
  Sender: FDA-Public Use
  Company Number: US-RB PHARMACEUTICALS LIMITED-RB-080893-2015

PATIENT
  Age: 21 Year
  Sex: Male

DRUGS (5)
  1. OPIOIDS [Suspect]
     Active Substance: UNSPECIFIED INGREDIENT
     Dosage: UNK
     Route: 045
  2. CANNABIS [Suspect]
     Active Substance: CANNABIS SATIVA SUBSP. INDICA TOP
     Indication: PRODUCT USED FOR UNKNOWN INDICATION
     Dosage: UNK
     Route: 065
  3. HEROIN [Suspect]
     Active Substance: DIACETYLMORPHINE
     Indication: PRODUCT USED FOR UNKNOWN INDICATION
     Dosage: UNK
     Route: 055
  4. SUBOXONE [Suspect]
     Active Substance: BUPRENORPHINE HYDROCHLORIDE\NALOXONE HYDROCHLORIDE
     Indication: DRUG DEPENDENCE
     Dosage: TOOK 1/4 OF THE STRIP
     Route: 060
  5. OPIOIDS [Suspect]
     Active Substance: UNSPECIFIED INGREDIENT
     Indication: PRODUCT USED FOR UNKNOWN INDICATION
     Dosage: UNK
     Route: 048

REACTIONS (13)
  - Oesophageal rupture [Recovered/Resolved]
  - Acute kidney injury [Unknown]
  - Pneumomediastinum [Unknown]
  - Hallucination, tactile [Unknown]
  - Drug detoxification [Unknown]
  - Extrapyramidal disorder [Recovered/Resolved]
  - Delirium [Unknown]
  - Hallucination, visual [Unknown]
  - Substance abuse [Unknown]
  - Drug withdrawal syndrome [Recovered/Resolved]
  - Hallucination, auditory [Unknown]
  - Rhabdomyolysis [Unknown]
  - Drug screen positive [Unknown]
